FAERS Safety Report 11911028 (Version 1)
Quarter: 2016Q1

REPORT INFORMATION
  Report Type: Spontaneous
  Country: US (occurrence: None)
  Receive Date: 20160111
  Receipt Date: 20160111
  Transmission Date: 20160526
  Serious: Yes (Other)
  Sender: FDA-Public Use
  Company Number: None

PATIENT
  Age: 43 Year

DRUGS (5)
  1. SPIRONOLACTONE 50 MG INTERPHARM INC [Suspect]
     Active Substance: SPIRONOLACTONE
     Indication: ACNE
     Dosage: 1 PILL A DAY -- --
  2. ORTHOTRICYCLINE [Concomitant]
  3. BIOTIN [Concomitant]
     Active Substance: BIOTIN
  4. NATURES BOUNTY HAIR SKIN AND NAILS [Concomitant]
  5. ALLEGRA D 12 HOUR ALLERGY AND CONGESTION [Concomitant]
     Active Substance: FEXOFENADINE HYDROCHLORIDE\PSEUDOEPHEDRINE HYDROCHLORIDE

REACTIONS (1)
  - Renal pain [None]

NARRATIVE: CASE EVENT DATE: 20151118
